FAERS Safety Report 21912751 (Version 1)
Quarter: 2023Q1

REPORT INFORMATION
  Report Type: Spontaneous
  Country: US (occurrence: US)
  Receive Date: 20230125
  Receipt Date: 20230125
  Transmission Date: 20230417
  Serious: No
  Sender: FDA-Public Use
  Company Number: US-ALLERGAN-2230624US

PATIENT
  Sex: Male

DRUGS (1)
  1. BOTOX [Suspect]
     Active Substance: ONABOTULINUMTOXINA
     Indication: Muscle spasticity
     Dosage: UNK, SINGLE
     Route: 030
     Dates: start: 20220803, end: 20220803

REACTIONS (4)
  - Neuralgia [Recovering/Resolving]
  - Muscle spasms [Unknown]
  - Muscular weakness [Unknown]
  - Pain in extremity [Unknown]
